FAERS Safety Report 10975703 (Version 1)
Quarter: 2015Q2

REPORT INFORMATION
  Report Type: Report from Study
  Country: AU (occurrence: AU)
  Receive Date: 20150401
  Receipt Date: 20150401
  Transmission Date: 20150821
  Serious: Yes (Hospitalization)
  Sender: FDA-Public Use
  Company Number: AU-BRISTOL-MYERS SQUIBB COMPANY-19201334

PATIENT
  Age: 74 Year
  Sex: Male
  Weight: 83.4 kg

DRUGS (13)
  1. IPILIMUMAB [Suspect]
     Active Substance: IPILIMUMAB
     Indication: METASTATIC MALIGNANT MELANOMA
     Route: 042
  2. TARGIN [Concomitant]
     Active Substance: NALOXONE HYDROCHLORIDE\OXYCODONE HYDROCHLORIDE
  3. ZOLEDRONIC ACID [Concomitant]
     Active Substance: ZOLEDRONIC ACID
  4. ENDONE [Concomitant]
     Active Substance: OXYCODONE HYDROCHLORIDE
  5. NIVOLUMAB [Suspect]
     Active Substance: NIVOLUMAB
     Indication: METASTATIC MALIGNANT MELANOMA
     Dosage: 1DF=250/83MG
     Route: 042
     Dates: start: 20130807
  6. FENTANYL TRANSDERMAL SYSTEM [Concomitant]
     Active Substance: FENTANYL
  7. COLOXYL + SENNA [Concomitant]
  8. TEMAZEPAM. [Concomitant]
     Active Substance: TEMAZEPAM
  9. GENTAMICIN SULFATE. [Concomitant]
     Active Substance: GENTAMICIN SULFATE
  10. PARACETAMOL [Concomitant]
     Active Substance: ACETAMINOPHEN
  11. TICARCILLIN [Concomitant]
     Active Substance: TICARCILLIN
  12. MOVICOL [Concomitant]
     Active Substance: POLYETHYLENE GLYCOL 3350\POTASSIUM CHLORIDE\SODIUM BICARBONATE\SODIUM CHLORIDE
  13. CLEXANE [Concomitant]
     Active Substance: ENOXAPARIN SODIUM

REACTIONS (1)
  - Pyrexia [Recovered/Resolved]

NARRATIVE: CASE EVENT DATE: 20130811
